FAERS Safety Report 15197478 (Version 1)
Quarter: 2018Q3

REPORT INFORMATION
  Report Type: Spontaneous
  Country: US (occurrence: US)
  Receive Date: 20180725
  Receipt Date: 20180725
  Transmission Date: 20181010
  Serious: No
  Sender: FDA-Public Use
  Company Number: US-ABBVIE-18P-163-2386145-00

PATIENT
  Sex: Female

DRUGS (4)
  1. ACYCLOVIR. [Concomitant]
     Active Substance: ACYCLOVIR
     Indication: GENITAL HERPES
  2. CYTOMEL [Concomitant]
     Active Substance: LIOTHYRONINE SODIUM
     Indication: PRODUCT USED FOR UNKNOWN INDICATION
     Dates: start: 2017
  3. SYNTHROID [Suspect]
     Active Substance: LEVOTHYROXINE SODIUM
     Indication: HYPOTHYROIDISM
     Route: 048
     Dates: end: 201804
  4. SYNTHROID [Suspect]
     Active Substance: LEVOTHYROXINE SODIUM
     Route: 048
     Dates: start: 201804

REACTIONS (6)
  - Vitamin B12 decreased [Recovering/Resolving]
  - Tri-iodothyronine decreased [Unknown]
  - Menopause [Not Recovered/Not Resolved]
  - Blood thyroid stimulating hormone decreased [Unknown]
  - Goitre [Not Recovered/Not Resolved]
  - Thyroxine decreased [Unknown]

NARRATIVE: CASE EVENT DATE: 2017
